FAERS Safety Report 8578675-5 (Version None)
Quarter: 2012Q3

REPORT INFORMATION
  Report Type: 
  Country: None (occurrence: None)
  Receive Date: 20120808
  Receipt Date: 20120731
  Transmission Date: 20120928
  Serious: Yes (Hospitalization)
  Sender: FDA-Public Use
  Company Number: US-SANOFI-AVENTIS-2011SA051859

PATIENT
  Age: 71 Year
  Sex: Female

DRUGS (11)
  1. ACE INHIBITOR NOS [Concomitant]
  2. INVESTIGATIONAL DRUG [Suspect]
     Route: 065
     Dates: start: 20110223
  3. ANTITHROMBOTIC AGENTS [Concomitant]
     Route: 048
  4. BETA BLOCKING AGENTS [Concomitant]
  5. GLIPIZIDE [Concomitant]
  6. PLAVIX [Suspect]
     Route: 065
  7. DIURETICS [Concomitant]
  8. COUMADIN [Suspect]
     Route: 065
  9. ORGANIC NITRATES [Concomitant]
  10. LANTUS [Concomitant]
  11. HMG COA REDUCTASE INHIBITORS [Concomitant]

REACTIONS (3)
  - GASTRITIS [None]
  - ABDOMINAL PAIN UPPER [None]
  - FAECES DISCOLOURED [None]
